FAERS Safety Report 24341633 (Version 1)
Quarter: 2024Q3

REPORT INFORMATION
  Report Type: Spontaneous
  Country: US (occurrence: US)
  Receive Date: 20240920
  Receipt Date: 20240920
  Transmission Date: 20241017
  Serious: No
  Sender: SANOFI AVENTIS
  Company Number: US-SA-2024SA268987

PATIENT
  Sex: Female
  Weight: 72.57 kg

DRUGS (22)
  1. DUPIXENT [Suspect]
     Active Substance: DUPILUMAB
     Indication: Illness
     Dosage: 300MG; QOW
     Route: 058
  2. EPIPEN [Concomitant]
     Active Substance: EPINEPHRINE
  3. ALBUTEROL SULFATE [Concomitant]
     Active Substance: ALBUTEROL SULFATE
  4. ZYRTEC [Concomitant]
     Active Substance: CETIRIZINE HYDROCHLORIDE
  5. HYDROCHLOROTHIAZIDE\TRIAMTERENE [Concomitant]
     Active Substance: HYDROCHLOROTHIAZIDE\TRIAMTERENE
  6. SINGULAIR [Concomitant]
     Active Substance: MONTELUKAST SODIUM
  7. ARMODAFINIL [Concomitant]
     Active Substance: ARMODAFINIL
  8. FLUTICASONE PROPIONATE [Concomitant]
     Active Substance: FLUTICASONE PROPIONATE
  9. BREO ELLIPTA [Concomitant]
     Active Substance: FLUTICASONE FUROATE\VILANTEROL TRIFENATATE
  10. PROAIR DIGIHALER [Concomitant]
     Active Substance: ALBUTEROL SULFATE
  11. GABAPENTIN [Concomitant]
     Active Substance: GABAPENTIN
  12. HYDROXYCHLOROQUINE SULFATE [Concomitant]
     Active Substance: HYDROXYCHLOROQUINE SULFATE
  13. DULOXETINE HYDROCHLORIDE [Concomitant]
     Active Substance: DULOXETINE HYDROCHLORIDE
  14. OMEPRAZOLE [Concomitant]
     Active Substance: OMEPRAZOLE
  15. TRAZODONE HCL [Concomitant]
     Active Substance: TRAZODONE HYDROCHLORIDE
  16. SIMVASTATIN [Concomitant]
     Active Substance: SIMVASTATIN
  17. CYCLOBENZAPRINE HYDROCHLORIDE [Concomitant]
     Active Substance: CYCLOBENZAPRINE HYDROCHLORIDE
  18. SUCRALFATE [Concomitant]
     Active Substance: SUCRALFATE
  19. SOLIFENACIN SUCCINATE [Concomitant]
     Active Substance: SOLIFENACIN SUCCINATE
  20. PREDNISONE [Concomitant]
     Active Substance: PREDNISONE
  21. LISINOPRIL [Concomitant]
     Active Substance: LISINOPRIL
  22. METHIMAZOLE [Concomitant]
     Active Substance: METHIMAZOLE

REACTIONS (2)
  - Pruritus [Unknown]
  - Product use in unapproved indication [Unknown]
